FAERS Safety Report 8822695 (Version 1)
Quarter: 2012Q4

REPORT INFORMATION
  Report Type: 
  Country: JP (occurrence: JP)
  Receive Date: 20121003
  Receipt Date: 20121003
  Transmission Date: 20130627
  Serious: Yes (Other)
  Sender: FDA-Public Use
  Company Number: JP-BRISTOL-MYERS SQUIBB COMPANY-16996522

PATIENT

DRUGS (1)
  1. BRIPLATIN [Suspect]
     Dosage: NO of dose:5

REACTIONS (1)
  - Anaphylactic shock [Recovered/Resolved]
